FAERS Safety Report 23764897 (Version 11)
Quarter: 2025Q1

REPORT INFORMATION
  Report Type: Report from Study
  Country: US (occurrence: US)
  Receive Date: 20240420
  Receipt Date: 20250325
  Transmission Date: 20250409
  Serious: Yes (Other)
  Sender: TAKEDA
  Company Number: US-TAKEDA-2024TUS037358

PATIENT
  Age: 49 Year
  Sex: Female

DRUGS (5)
  1. LANADELUMAB [Suspect]
     Active Substance: LANADELUMAB
     Indication: Immune system disorder
  2. LANADELUMAB [Suspect]
     Active Substance: LANADELUMAB
  3. LANADELUMAB [Suspect]
     Active Substance: LANADELUMAB
  4. BENLYSTA [Concomitant]
     Active Substance: BELIMUMAB
  5. EPINEPHRINE [Concomitant]
     Active Substance: EPINEPHRINE

REACTIONS (9)
  - Diverticulitis [Unknown]
  - Colitis [Unknown]
  - Nephrolithiasis [Unknown]
  - Weight decreased [Unknown]
  - Weight increased [Unknown]
  - Anaemia [Unknown]
  - Blood potassium decreased [Unknown]
  - Product use issue [Unknown]
  - Hereditary angioedema [Unknown]

NARRATIVE: CASE EVENT DATE: 20220801
